FAERS Safety Report 4552682-1 (Version None)
Quarter: 2005Q1

REPORT INFORMATION
  Report Type: 
  Country: None (occurrence: None)
  Receive Date: 20050114
  Receipt Date: 20041221
  Transmission Date: 20050727
  Serious: Yes (Other)
  Sender: FDA-Public Use
  Company Number: PHBS2004CA17273

PATIENT
  Age: 70 Year
  Sex: Female
  Weight: 67 kg

DRUGS (4)
  1. DIOVAN [Suspect]
     Dosage: 160 MG/DAY
     Route: 048
     Dates: start: 20030303, end: 20041201
  2. SERTRALINE HYDROCHLORIDE [Concomitant]
     Dosage: 25 MG, QD
  3. CLONAZEPAM [Concomitant]
     Dosage: 0.5 MG, PRN
  4. HYDROCHLORZIDE [Concomitant]
     Dosage: 25 MG, QD

REACTIONS (3)
  - ECZEMA [None]
  - PRURITUS [None]
  - RASH PAPULAR [None]
